FAERS Safety Report 17765206 (Version 1)
Quarter: 2020Q2

REPORT INFORMATION
  Report Type: Spontaneous
  Country: US (occurrence: US)
  Receive Date: 20200509
  Receipt Date: 20200509
  Transmission Date: 20200714
  Serious: Yes (Disabling)
  Sender: FDA-Public Use
  Company Number: None

PATIENT
  Age: 39 Year
  Sex: Male
  Weight: 69.75 kg

DRUGS (5)
  1. MELATONIN [Concomitant]
     Active Substance: MELATONIN
  2. MENS MULTIVITAMINS [Concomitant]
  3. MAENG DA KRATOM [Suspect]
     Active Substance: HERBALS\MITRAGYNINE
     Indication: PAIN
     Dosage: ?          QUANTITY:8 CAPSULE(S);?
     Route: 048
  4. VITAMIN D [Concomitant]
     Active Substance: VITAMIN D NOS
  5. MAENG DA KRATOM [Suspect]
     Active Substance: HERBALS\MITRAGYNINE
     Indication: INFLAMMATION
     Dosage: ?          QUANTITY:8 CAPSULE(S);?
     Route: 048

REACTIONS (12)
  - Drug dependence [None]
  - Hypertension [None]
  - Decreased appetite [None]
  - Weight decreased [None]
  - Anxiety [None]
  - Product complaint [None]
  - Unevaluable event [None]
  - Dehydration [None]
  - Partner stress [None]
  - Withdrawal syndrome [None]
  - Loss of libido [None]
  - Condition aggravated [None]

NARRATIVE: CASE EVENT DATE: 20200508
